FAERS Safety Report 7430953-9 (Version None)
Quarter: 2011Q2

REPORT INFORMATION
  Report Type: 
  Country: None (occurrence: None)
  Receive Date: 20110421
  Receipt Date: 20110413
  Transmission Date: 20111010
  Serious: Yes (Hospitalization, Other)
  Sender: FDA-Public Use
  Company Number: PHHY2011IT30801

PATIENT
  Age: 45 Year
  Sex: Female
  Weight: 64 kg

DRUGS (3)
  1. ATENOLOL [Concomitant]
  2. HYDROCHLOROTHIAZIDE [Concomitant]
  3. KETOPROFEN [Suspect]
     Indication: TENSION HEADACHE
     Dosage: 80 MG, BID

REACTIONS (6)
  - ABDOMINAL DISCOMFORT [None]
  - JAUNDICE [None]
  - FATIGUE [None]
  - HEPATIC STEATOSIS [None]
  - PYREXIA [None]
  - GOITRE [None]
